FAERS Safety Report 7289163-0 (Version None)
Quarter: 2011Q1

REPORT INFORMATION
  Report Type: 
  Country: None (occurrence: None)
  Receive Date: 20110211
  Receipt Date: 20110207
  Transmission Date: 20110831
  Serious: Yes (Death)
  Sender: FDA-Public Use
  Company Number: TN-SANOFI-AVENTIS-2011SA008188

PATIENT
  Age: 81 Year
  Sex: Male

DRUGS (8)
  1. PLAVIX [Suspect]
     Route: 048
     Dates: start: 20100723, end: 20100901
  2. TRIMETAZIDINE HYDROCHLORIDE [Concomitant]
     Route: 048
     Dates: end: 20100901
  3. SIMVASTATIN [Concomitant]
     Route: 048
     Dates: end: 20100901
  4. TRANXENE [Concomitant]
     Route: 048
     Dates: end: 20100901
  5. PLAVIX [Suspect]
     Route: 048
     Dates: start: 20100723, end: 20100901
  6. ENALAPRIL MALEATE AND HYDROCHLOROTHIAZIDE [Concomitant]
     Route: 048
     Dates: end: 20100901
  7. ASPIRIN [Concomitant]
     Route: 048
     Dates: end: 20100901
  8. SECTRAL [Concomitant]
     Route: 048
     Dates: end: 20100901

REACTIONS (2)
  - FALL [None]
  - DEATH [None]
